FAERS Safety Report 25620109 (Version 1)
Quarter: 2025Q3

REPORT INFORMATION
  Report Type: Spontaneous
  Country: AU (occurrence: AU)
  Receive Date: 20250730
  Receipt Date: 20250730
  Transmission Date: 20251021
  Serious: Yes (Other)
  Sender: BOEHRINGER INGELHEIM
  Company Number: AU-BoehringerIngelheim-2025-BI-084640

PATIENT

DRUGS (3)
  1. HYDROCHLOROTHIAZIDE\TELMISARTAN [Suspect]
     Active Substance: HYDROCHLOROTHIAZIDE\TELMISARTAN
     Indication: Product used for unknown indication
     Dates: start: 2025, end: 2025
  2. METFORMIN HYDROCHLORIDE [Suspect]
     Active Substance: METFORMIN HYDROCHLORIDE
     Indication: Product used for unknown indication
     Dates: start: 2025, end: 20250521
  3. LEVOTHYROXINE SODIUM [Suspect]
     Active Substance: LEVOTHYROXINE SODIUM
     Indication: Product used for unknown indication
     Dates: start: 2025, end: 2025

REACTIONS (22)
  - Pulmonary embolism [Recovering/Resolving]
  - Arrhythmia [Unknown]
  - Bronchospasm paradoxical [Unknown]
  - Chest discomfort [Unknown]
  - Decreased appetite [Recovering/Resolving]
  - Diarrhoea [Unknown]
  - Dysgeusia [Recovering/Resolving]
  - Dysphonia [Recovered/Resolved]
  - Dyspnoea [Recovered/Resolved]
  - Heart rate increased [Recovered/Resolved]
  - Hypopnoea [Unknown]
  - Muscle spasms [Recovering/Resolving]
  - Nausea [Recovering/Resolving]
  - Pallor [Unknown]
  - Retching [Recovering/Resolving]
  - Vomiting [Recovering/Resolving]
  - Emotional distress [Unknown]
  - Fatigue [Recovering/Resolving]
  - Loss of personal independence in daily activities [Unknown]
  - Lung disorder [Unknown]
  - Malaise [Recovering/Resolving]
  - Poor quality sleep [Unknown]

NARRATIVE: CASE EVENT DATE: 20250101
